FAERS Safety Report 5247426-4 (Version None)
Quarter: 2007Q1

REPORT INFORMATION
  Report Type: 
  Country: None (occurrence: None)
  Receive Date: 20070220
  Receipt Date: 20070205
  Transmission Date: 20070707
  Serious: Yes (Hospitalization)
  Sender: FDA-Public Use
  Company Number: CERZ-11429

PATIENT
  Age: 73 Year
  Sex: Male
  Weight: 70.45 kg

DRUGS (5)
  1. CEREZYME [Suspect]
     Indication: GAUCHER'S DISEASE
     Dosage: 1200 UNITS Q4WKS IV
     Route: 042
     Dates: start: 19980514
  2. PROTONIX [Concomitant]
  3. AVODART [Concomitant]
  4. PRINIVIL [Concomitant]
  5. ARIXTRA [Concomitant]

REACTIONS (5)
  - ACUTE MYOCARDIAL INFARCTION [None]
  - ANAEMIA [None]
  - PATELLA FRACTURE [None]
  - PATHOLOGICAL FRACTURE [None]
  - ROAD TRAFFIC ACCIDENT [None]
